FAERS Safety Report 17993313 (Version 1)
Quarter: 2020Q3

REPORT INFORMATION
  Report Type: Spontaneous
  Country: BR (occurrence: BR)
  Receive Date: 20200708
  Receipt Date: 20200708
  Transmission Date: 20201103
  Serious: Yes (Other)
  Sender: FDA-Public Use
  Company Number: BR-AUROBINDO-AUR-APL-2020-034403

PATIENT
  Age: 48 Year
  Sex: Female

DRUGS (9)
  1. DIGOXIN. [Suspect]
     Active Substance: DIGOXIN
     Indication: NON-COMPACTION CARDIOMYOPATHY
     Dosage: 0.125 MILLIGRAM, DAILY
     Route: 065
  2. ISOSORBIDE MONONITRATE. [Suspect]
     Active Substance: ISOSORBIDE MONONITRATE
     Indication: NON-COMPACTION CARDIOMYOPATHY
     Dosage: 80 MILLIGRAM, DAILY
     Route: 065
  3. WARFARIN [Concomitant]
     Active Substance: WARFARIN
     Indication: PRODUCT USED FOR UNKNOWN INDICATION
     Dosage: UNK UNK, DAILY
     Route: 065
  4. FUROSEMIDE. [Suspect]
     Active Substance: FUROSEMIDE
     Indication: NON-COMPACTION CARDIOMYOPATHY
     Dosage: 120 MILLIGRAM, DAILY
     Route: 065
  5. LOSARTAN. [Suspect]
     Active Substance: LOSARTAN
     Indication: NON-COMPACTION CARDIOMYOPATHY
     Dosage: 100 MILLIGRAM, DAILY
     Route: 065
  6. CARVEDILOL. [Suspect]
     Active Substance: CARVEDILOL
     Indication: NON-COMPACTION CARDIOMYOPATHY
     Dosage: 50 MILLIGRAM, DAILY
     Route: 065
  7. SPIRONOLACTONE. [Suspect]
     Active Substance: SPIRONOLACTONE
     Indication: NON-COMPACTION CARDIOMYOPATHY
     Dosage: 25 MILLIGRAM, DAILY
     Route: 065
  8. HYDRALAZINE [Suspect]
     Active Substance: HYDRALAZINE HYDROCHLORIDE
     Indication: NON-COMPACTION CARDIOMYOPATHY
     Dosage: 100 MILLIGRAM, DAILY
     Route: 065
  9. LEVOTHYROXINE. [Concomitant]
     Active Substance: LEVOTHYROXINE
     Indication: PRODUCT USED FOR UNKNOWN INDICATION
     Dosage: 25 MCG, DAILY
     Route: 065

REACTIONS (1)
  - Treatment failure [Unknown]
